FAERS Safety Report 4613954-5 (Version None)
Quarter: 2005Q1

REPORT INFORMATION
  Report Type: 
  Country: None (occurrence: None)
  Receive Date: 20050314
  Receipt Date: 20050311
  Transmission Date: 20050727
  Serious: Yes (Death)
  Sender: FDA-Public Use
  Company Number: A001-002-006426

PATIENT
  Sex: Female

DRUGS (1)
  1. ARICEPT [Suspect]
     Indication: DEMENTIA
     Dosage: 5 MG, 1 IN 1 D, ORAL
     Route: 048

REACTIONS (5)
  - ABNORMAL BEHAVIOUR [None]
  - ARRHYTHMIA [None]
  - ASTHENIA [None]
  - CARDIAC ARREST [None]
  - DECREASED APPETITE [None]
